FAERS Safety Report 18807559 (Version 1)
Quarter: 2021Q1

REPORT INFORMATION
  Report Type: Spontaneous
  Country: US (occurrence: US)
  Receive Date: 20210128
  Receipt Date: 20210128
  Transmission Date: 20210419
  Serious: No
  Sender: FDA-Public Use
  Company Number: None

PATIENT
  Age: 31 Year
  Sex: Male

DRUGS (1)
  1. COPAXONE [Suspect]
     Active Substance: GLATIRAMER ACETATE
     Dosage: FREQUENCY: OTHER
     Route: 058
     Dates: start: 202001

REACTIONS (4)
  - Flushing [None]
  - Dizziness [None]
  - Chest discomfort [None]
  - Urticaria [None]

NARRATIVE: CASE EVENT DATE: 20210128
